FAERS Safety Report 6228147-8 (Version None)
Quarter: 2009Q2

REPORT INFORMATION
  Report Type: 
  Country: None (occurrence: None)
  Receive Date: 20090612
  Receipt Date: 20090609
  Transmission Date: 20091009
  Serious: Yes (Hospitalization)
  Sender: FDA-Public Use
  Company Number: FR-BRISTOL-MYERS SQUIBB COMPANY-14656409

PATIENT
  Age: 33 Year
  Sex: Female

DRUGS (2)
  1. VIDEX [Suspect]
     Dates: start: 20070706, end: 20070903
  2. COMBIVIR [Suspect]
     Dosage: 1DF=150MG/300MG
     Dates: start: 20070706, end: 20070903

REACTIONS (3)
  - ANAEMIA [None]
  - ASTHENIA [None]
  - DYSPNOEA [None]
